FAERS Safety Report 7019614-8 (Version None)
Quarter: 2010Q3

REPORT INFORMATION
  Report Type: 
  Country: None (occurrence: None)
  Receive Date: 20100928
  Receipt Date: 20100928
  Transmission Date: 20110219
  Serious: Yes (Life-Threatening, Hospitalization, Other)
  Sender: FDA-Public Use
  Company Number: None

PATIENT
  Age: 43 Year
  Sex: Male
  Weight: 79.3795 kg

DRUGS (2)
  1. OCTAGAM [Suspect]
     Indication: IMMUNE SYSTEM DISORDER
     Dosage: 7 PER DAY ONCE DAILY IV
     Route: 042
     Dates: start: 20100913, end: 20100917
  2. OCTAGAM [Suspect]
     Indication: MULTIPLE SCLEROSIS
     Dosage: 7 PER DAY ONCE DAILY IV
     Route: 042
     Dates: start: 20100913, end: 20100917

REACTIONS (3)
  - HYPERTENSION [None]
  - PRODUCT QUALITY ISSUE [None]
  - PULMONARY THROMBOSIS [None]
